FAERS Safety Report 10647759 (Version 1)
Quarter: 2014Q4

REPORT INFORMATION
  Report Type: Report from Study
  Country: US (occurrence: US)
  Receive Date: 20141212
  Receipt Date: 20141212
  Transmission Date: 20150529
  Serious: Yes (Other)
  Sender: FDA-Public Use
  Company Number: US-GILEAD-2014-0126316

PATIENT
  Age: 65 Year
  Sex: Female

DRUGS (3)
  1. PEGYLATED INTERFERON ALPHA NOS [Concomitant]
     Active Substance: PEGINTERFERON ALFA-2A OR PEGINTERFERON ALFA-2B
     Dosage: UNK
     Dates: start: 20140604, end: 201408
  2. RIBAVIRIN. [Concomitant]
     Active Substance: RIBAVIRIN
     Dosage: UNK
     Dates: start: 20140604, end: 201408
  3. SOFOSBUVIR [Suspect]
     Active Substance: SOFOSBUVIR
     Indication: HEPATITIS C
     Dosage: 1 DF, QD
     Route: 065
     Dates: start: 20140604, end: 201408

REACTIONS (8)
  - Asthenia [Unknown]
  - Visual acuity reduced [Unknown]
  - Viral load increased [Unknown]
  - Feeding disorder [Unknown]
  - Weight decreased [Unknown]
  - Pain [Unknown]
  - Palpitations [Unknown]
  - Alopecia [Unknown]

NARRATIVE: CASE EVENT DATE: 201406
